FAERS Safety Report 7592118-X (Version None)
Quarter: 2011Q3

REPORT INFORMATION
  Report Type: 
  Country: None (occurrence: None)
  Receive Date: 20110706
  Receipt Date: 20091122
  Transmission Date: 20111222
  Serious: Yes (Death, Other)
  Sender: FDA-Public Use
  Company Number: US-BAYER-200940639NA

PATIENT
  Age: 70 Year
  Sex: Male
  Weight: 75 kg

DRUGS (14)
  1. TRASYLOL [Suspect]
     Indication: PRODUCT USED FOR UNKNOWN INDICATION
     Dosage: UNK
     Route: 042
     Dates: start: 20020723, end: 20020723
  2. MANNITOL [Concomitant]
     Dosage: 400 CC
     Route: 042
     Dates: start: 20020723
  3. GLUCOPHAGE [Concomitant]
     Dosage: 1000 MG, QD
     Route: 048
  4. LASIX [Concomitant]
     Dosage: 40 MG, QD
     Route: 048
  5. ZINACEF [Concomitant]
     Dosage: UNK
     Route: 042
     Dates: start: 20020723
  6. DIGOXIN [Concomitant]
     Route: 048
  7. HEPARIN [Concomitant]
     Dosage: 30 KU
     Route: 042
     Dates: start: 20020723
  8. ANCEF [Concomitant]
     Dosage: 2 G, UNK
     Route: 042
     Dates: start: 20020723
  9. ZESTRIL [Concomitant]
     Dosage: 20 MG, QD
     Route: 048
  10. CLONIDINE [Concomitant]
     Dosage: 0.2 MG, TID
     Route: 048
  11. LABETALOL HCL [Concomitant]
     Dosage: 400 MG, QD
     Route: 048
  12. NITROGLYCERIN [Concomitant]
     Dosage: UNK
     Route: 042
     Dates: start: 20020723
  13. EPINEPHRINE [Concomitant]
     Dosage: UNK
     Route: 042
     Dates: start: 20020723
  14. AMIODARONE HCL [Concomitant]
     Dosage: UNK
     Route: 042
     Dates: start: 20020723

REACTIONS (13)
  - RENAL FAILURE [None]
  - EMOTIONAL DISTRESS [None]
  - RENAL IMPAIRMENT [None]
  - MULTI-ORGAN FAILURE [None]
  - INJURY [None]
  - PAIN [None]
  - ANHEDONIA [None]
  - STRESS [None]
  - DEATH [None]
  - ANXIETY [None]
  - UNEVALUABLE EVENT [None]
  - RENAL INJURY [None]
  - FEAR [None]
